FAERS Safety Report 8018803-3 (Version None)
Quarter: 2012Q1

REPORT INFORMATION
  Report Type: 
  Country: None (occurrence: None)
  Receive Date: 20120103
  Receipt Date: 20111220
  Transmission Date: 20120608
  Serious: Yes (Other)
  Sender: FDA-Public Use
  Company Number: JP-UCBSA-043445

PATIENT
  Age: 16 Year
  Sex: Male
  Weight: 59 kg

DRUGS (14)
  1. DIAZEPAM [Concomitant]
     Indication: INSOMNIA
     Dosage: DAILY DOSE 7 MG
     Route: 048
     Dates: start: 20090902
  2. SOLACET [Concomitant]
     Dates: start: 20111005, end: 20111015
  3. TPN ELECTROLYTES IN PLASTIC CONTAINER [Concomitant]
     Dates: start: 20111005, end: 20111015
  4. PHENYTOIN SODIUM CAP [Concomitant]
     Dosage: DAIY DOSE-560 MG
     Route: 048
     Dates: start: 20111007, end: 20111013
  5. PHENYTOIN SODIUM CAP [Concomitant]
     Dosage: DAILY DOSE-560 MG
     Route: 048
     Dates: start: 20111021
  6. PHENYTOIN SODIUM CAP [Concomitant]
     Dosage: DAILY DOSE-520 MG
     Route: 048
     Dates: start: 20110930, end: 20111006
  7. KEPPRA [Suspect]
     Indication: EPILEPSY
     Route: 048
     Dates: start: 20110928, end: 20110930
  8. PHYSIO [Concomitant]
     Dosage: 35
     Dates: start: 20111005, end: 20111015
  9. KEPPRA [Suspect]
     Route: 048
     Dates: start: 20110909, end: 20110927
  10. PHENYTOIN SODIUM CAP [Concomitant]
     Dosage: DAILY DOSE-600 MG
     Route: 048
     Dates: start: 20111014, end: 20111020
  11. ZONISAMIDE [Concomitant]
     Indication: EPILEPSY
     Dosage: DAILY DOSE 200 MG
     Route: 048
     Dates: start: 20000818
  12. MOTILIUM [Concomitant]
     Indication: VOMITING
     Dates: start: 20111001, end: 20111014
  13. VEEN D [Concomitant]
     Dates: start: 20111005, end: 20111015
  14. PHENYTOIN SODIUM CAP [Concomitant]
     Indication: EPILEPSY
     Dosage: DAILY DOSE-560 MG
     Route: 048
     Dates: start: 19970306

REACTIONS (5)
  - DECREASED APPETITE [None]
  - VOMITING [None]
  - DRUG LEVEL DECREASED [None]
  - DEHYDRATION [None]
  - ABNORMAL BEHAVIOUR [None]
